FAERS Safety Report 4831084-4 (Version None)
Quarter: 2005Q4

REPORT INFORMATION
  Report Type: 
  Country: None (occurrence: None)
  Receive Date: 20051118
  Receipt Date: 20051107
  Transmission Date: 20060501
  Serious: Yes (Death)
  Sender: FDA-Public Use
  Company Number: US-ABBOTT-05P-163-0317270-00

PATIENT
  Age: 26 Year
  Sex: Female

DRUGS (3)
  1. CYCLOSPORINE [Suspect]
     Indication: PROPHYLAXIS AGAINST TRANSPLANT REJECTION
     Dosage: 3-5MG/KG/DAY
  2. STEROID [Concomitant]
     Indication: PROPHYLAXIS AGAINST TRANSPLANT REJECTION
     Dosage: METHYL-PREDNISOLONE OR PREDNISONE
  3. METHOTREXATE [Concomitant]
     Indication: UNRELATED DONOR BONE MARROW TRANSPLANTATION THERAPY
     Dosage: 15 MG/M ON DAY 1, 10 MG/M ON DAYS 3, 6, AND 11 FOLLOWING TRANSPLANTATION

REACTIONS (4)
  - CONVULSION [None]
  - GRAFT VERSUS HOST DISEASE [None]
  - NEUROTOXICITY [None]
  - THROMBOTIC MICROANGIOPATHY [None]
